FAERS Safety Report 4704334-2 (Version None)
Quarter: 2005Q2

REPORT INFORMATION
  Report Type: 
  Country: None (occurrence: None)
  Receive Date: 20050630
  Receipt Date: 20050621
  Transmission Date: 20051028
  Serious: Yes (Hospitalization, Other)
  Sender: FDA-Public Use
  Company Number: US-JNJFOC-20050103371

PATIENT
  Sex: Male

DRUGS (5)
  1. RISPERDAL [Suspect]
     Route: 049
  2. RISPERDAL [Suspect]
     Indication: DEPRESSION
     Dosage: (REDUCED TO ONE-HALF TABLET)
     Route: 049
  3. EFFEXOR [Concomitant]
     Route: 049
  4. EFFEXOR [Concomitant]
     Dosage: 150 MG STRENGTH
     Route: 049
  5. REMERON [Concomitant]
     Route: 049

REACTIONS (15)
  - ABDOMINAL PAIN UPPER [None]
  - ANXIETY [None]
  - ASCITES [None]
  - DEPRESSION [None]
  - DIABETES MELLITUS [None]
  - HEADACHE [None]
  - HEART RATE INCREASED [None]
  - HEPATIC STEATOSIS [None]
  - HYPERTENSION [None]
  - HYPOAESTHESIA [None]
  - HYPOGONADISM [None]
  - INSOMNIA [None]
  - LIVER FUNCTION TEST ABNORMAL [None]
  - NEPHROLITHIASIS [None]
  - RASH GENERALISED [None]
